FAERS Safety Report 16056098 (Version 1)
Quarter: 2019Q1

REPORT INFORMATION
  Report Type: Spontaneous
  Country: US (occurrence: US)
  Receive Date: 20190208
  Receipt Date: 20190208
  Transmission Date: 20190418
  Serious: Yes (Hospitalization)
  Sender: FDA-Public Use
  Company Number: None

PATIENT
  Age: 52 Year
  Sex: Male
  Weight: 87.4 kg

DRUGS (1)
  1. INTRON A [Suspect]
     Active Substance: INTERFERON ALFA-2B
     Dosage: 21 MILLION IU
     Dates: end: 20120227

REACTIONS (2)
  - Fatigue [None]
  - Neutrophil count decreased [None]

NARRATIVE: CASE EVENT DATE: 20120228
